FAERS Safety Report 12731396 (Version 1)
Quarter: 2016Q3

REPORT INFORMATION
  Report Type: Report from Study
  Country: US (occurrence: US)
  Receive Date: 20160912
  Receipt Date: 20160912
  Transmission Date: 20161109
  Serious: No
  Sender: FDA-Public Use
  Company Number: US-THERATECHNOLOGIES, INC.-TH-2016-00105

PATIENT
  Sex: Male

DRUGS (35)
  1. AMITRIPTYLIN [Concomitant]
     Active Substance: AMITRIPTYLINE
     Dosage: UNSPECIFIED
  2. CARVEDILOL. [Concomitant]
     Active Substance: CARVEDILOL
     Dosage: UNSPECIFIED
  3. PROVENTIL [Concomitant]
     Active Substance: ALBUTEROL
     Dosage: UNSPECIFIED
  4. REYATAZ [Concomitant]
     Active Substance: ATAZANAVIR SULFATE
     Dosage: UNSPECIFIED
  5. CRESTOR [Concomitant]
     Active Substance: ROSUVASTATIN CALCIUM
     Dosage: UNSPECIFIED
  6. OMEPRAZOLE. [Concomitant]
     Active Substance: OMEPRAZOLE
     Dosage: UNSPECIFIED
  7. TIVICAY [Concomitant]
     Active Substance: DOLUTEGRAVIR SODIUM
     Dosage: UNSPECIFIED
  8. KLOR-CON [Concomitant]
     Active Substance: POTASSIUM CHLORIDE
     Dosage: UNSPECIFIED
  9. METHYLPRED [Concomitant]
     Active Substance: METHYLPREDNISOLONE
     Dosage: UNSPECIFIED
  10. POT CKLOR [Concomitant]
     Dosage: UNSPECIFIED
  11. ZOLPIDEM [Concomitant]
     Active Substance: ZOLPIDEM\ZOLPIDEM TARTRATE
     Dosage: UNSPECIFIED
  12. DEXAMETHASONE. [Concomitant]
     Active Substance: DEXAMETHASONE
     Dosage: UNSPECIFIED
  13. GABAPENTIN. [Concomitant]
     Active Substance: GABAPENTIN
     Dosage: UNSPECIFIED
  14. HCTZ [Concomitant]
     Active Substance: HYDROCHLOROTHIAZIDE
     Dosage: UNSPECIFIED
  15. LISINOPRIL. [Concomitant]
     Active Substance: LISINOPRIL
     Dosage: UNSPECIFIED
  16. NORVIR [Concomitant]
     Active Substance: RITONAVIR
     Dosage: UNSPECIFIED
  17. NYSTATIN. [Concomitant]
     Active Substance: NYSTATIN
     Dosage: UNSPECIFIED
  18. ALPRAZOLAM. [Concomitant]
     Active Substance: ALPRAZOLAM
     Dosage: UNSPECIFIED
  19. COREG [Concomitant]
     Active Substance: CARVEDILOL
     Dosage: UNSPECIFIED
  20. FLUCONAZOLE. [Concomitant]
     Active Substance: FLUCONAZOLE
     Dosage: UNSPECIFIED
  21. PROAIR HFA [Concomitant]
     Active Substance: ALBUTEROL SULFATE
     Dosage: UNSPECIFIED
  22. TERBINAFINE. [Concomitant]
     Active Substance: TERBINAFINE
     Dosage: UNSPECIFIED
  23. CLONIDINE. [Concomitant]
     Active Substance: CLONIDINE
     Dosage: UNSPECIFIED
  24. IBUPROFEN. [Concomitant]
     Active Substance: IBUPROFEN
     Dosage: UNSPECIFIED
  25. METHADONE [Concomitant]
     Active Substance: METHADONE HYDROCHLORIDE
     Dosage: UNSPECIFIED
  26. TESTOST CYP [Concomitant]
     Active Substance: TESTOSTERONE CYPIONATE
     Dosage: UNSPECIFIED
  27. VITAMIN D [Concomitant]
     Active Substance: CHOLECALCIFEROL
     Dosage: UNSPECIFIED
  28. EGRIFTA [Suspect]
     Active Substance: TESAMORELIN
     Dosage: 2 ML
     Route: 058
  29. CETIRIZINE [Concomitant]
     Active Substance: CETIRIZINE HYDROCHLORIDE
     Dosage: UNSPECIFIED
  30. CLOTRIMAZOLE. [Concomitant]
     Active Substance: CLOTRIMAZOLE
     Dosage: UNSPECIFIED
  31. GEMFIBROZIL. [Concomitant]
     Active Substance: GEMFIBROZIL
     Dosage: UNSPECIFIED
  32. KETOCONAZOLE CRE 2% [Concomitant]
     Dosage: UNSPECIFIED
  33. LEVITRA [Concomitant]
     Active Substance: VARDENAFIL HYDROCHLORIDE TRIHYDRATE
     Dosage: UNSPECIFIED
  34. LOPID [Concomitant]
     Active Substance: GEMFIBROZIL
     Dosage: UNSPECIFIED
  35. TRIAMCINOLON CRE [Concomitant]
     Dosage: UNSPECIFIED

REACTIONS (1)
  - Fatigue [Unknown]
